FAERS Safety Report 12674229 (Version 2)
Quarter: 2016Q3

REPORT INFORMATION
  Report Type: Spontaneous
  Country: FR (occurrence: FR)
  Receive Date: 20160822
  Receipt Date: 20160901
  Transmission Date: 20161109
  Serious: Yes (Hospitalization)
  Sender: FDA-Public Use
  Company Number: FR-PFIZER INC-2016382586

PATIENT
  Age: 30 Year
  Sex: Male

DRUGS (8)
  1. VIAGRA [Suspect]
     Active Substance: SILDENAFIL CITRATE
     Route: 048
  2. CANNABIS [Concomitant]
     Active Substance: CANNABIS SATIVA SUBSP. INDICA TOP
  3. COCAINE [Concomitant]
     Active Substance: COCAINE
  4. TRUVADA [Suspect]
     Active Substance: EMTRICITABINE\TENOFOVIR DISOPROXIL FUMARATE
     Indication: PROPHYLAXIS AGAINST HIV INFECTION
     Dosage: 1 DF, DAILY
     Route: 048
     Dates: start: 20160107, end: 20160626
  5. PARACETAMOL [Suspect]
     Active Substance: ACETAMINOPHEN
     Dosage: 12 G, DAILY WITHIN 24 HOURS
     Route: 048
     Dates: start: 20160620, end: 20160620
  6. METHAMPHETAMINE HYDROCHLORIDE. [Concomitant]
     Active Substance: METHAMPHETAMINE HYDROCHLORIDE
  7. CATHINONE [Concomitant]
     Active Substance: CATHINONE
  8. METHYLENEDIOXYMETHAMPHETAMINE [Concomitant]
     Active Substance: METHYLENEDIOXYMETHAMPHETAMINE

REACTIONS (6)
  - Headache [Recovered/Resolved]
  - Abdominal pain upper [Recovered/Resolved]
  - Vomiting [Recovered/Resolved]
  - Phonophobia [Recovered/Resolved]
  - Photophobia [Recovered/Resolved]
  - Lipase increased [Recovering/Resolving]

NARRATIVE: CASE EVENT DATE: 20160620
